FAERS Safety Report 7961995-2 (Version None)
Quarter: 2011Q4

REPORT INFORMATION
  Report Type: 
  Country: None (occurrence: None)
  Receive Date: 20111207
  Receipt Date: 20111125
  Transmission Date: 20120403
  Serious: Yes (Hospitalization)
  Sender: FDA-Public Use
  Company Number: TR-ROCHE-1016634

PATIENT
  Sex: Female
  Weight: 60 kg

DRUGS (3)
  1. PEGINTERFERON ALFA-2A [Suspect]
     Indication: HEPATITIS D
     Dosage: LAST DOSE PRIOR TO EVENT: 28-SEP-2011
     Route: 058
     Dates: start: 20101027
  2. BLINDED TENOFOVIR [Suspect]
     Indication: HEPATITIS D
     Dosage: QD, LAST DOSE PRIOR TO EVENT: 14-OCT-201
     Route: 048
     Dates: start: 20101027
  3. THYROID HORMONE [Concomitant]
     Dates: start: 20070710

REACTIONS (2)
  - ORAL LICHEN PLANUS [None]
  - LEUKOPLAKIA ORAL [None]
